FAERS Safety Report 5224100-1 (Version None)
Quarter: 2007Q1

REPORT INFORMATION
  Report Type: 
  Country: None (occurrence: None)
  Receive Date: 20070130
  Receipt Date: 20070119
  Transmission Date: 20070707
  Serious: Yes (Other)
  Sender: FDA-Public Use
  Company Number: US-ROCHE-479516

PATIENT
  Age: 37 Year
  Sex: Female

DRUGS (2)
  1. PEGASYS [Suspect]
     Indication: HEPATITIS C VIRUS
     Route: 065
     Dates: start: 20060720
  2. COPEGUS [Suspect]
     Indication: HEPATITIS C VIRUS
     Route: 065
     Dates: start: 20060720

REACTIONS (7)
  - ASTHENIA [None]
  - DYSPNOEA EXERTIONAL [None]
  - FATIGUE [None]
  - FEELING ABNORMAL [None]
  - HAEMOGLOBIN DECREASED [None]
  - HEPATIC NEOPLASM MALIGNANT [None]
  - WHITE BLOOD CELL COUNT DECREASED [None]
